FAERS Safety Report 19087362 (Version 1)
Quarter: 2021Q2

REPORT INFORMATION
  Report Type: Spontaneous
  Country: GB (occurrence: GB)
  Receive Date: 20210402
  Receipt Date: 20210402
  Transmission Date: 20210717
  Serious: Yes (Hospitalization)
  Sender: FDA-Public Use
  Company Number: GB-NOVOPROD-798995

PATIENT
  Age: 66 Year
  Sex: Male
  Weight: 82 kg

DRUGS (1)
  1. NOVOMIX 30 PENFILL [Suspect]
     Active Substance: INSULIN ASPART
     Indication: TYPE 2 DIABETES MELLITUS
     Dosage: 35 IU, QD (20 UNITS IN THE MORNING AND 15 UNITS IN THE EVENING)
     Route: 065
     Dates: start: 2000

REACTIONS (1)
  - Heart rate abnormal [Unknown]
